FAERS Safety Report 9878561 (Version 2)
Quarter: 2014Q1

REPORT INFORMATION
  Report Type: Report from Study
  Country: DE (occurrence: DE)
  Receive Date: 20140206
  Receipt Date: 20140206
  Transmission Date: 20141002
  Serious: Yes (Hospitalization)
  Sender: FDA-Public Use
  Company Number: DE-BRISTOL-MYERS SQUIBB COMPANY-19166743

PATIENT
  Age: 79 Year
  Sex: Female

DRUGS (2)
  1. ABATACEPT [Suspect]
     Dosage: 28AUG12TOAUG12?T207FEB13?T324JUL13
     Dates: start: 20120828
  2. HYDROXYCHLOROQUINE [Concomitant]
     Dosage: HCQ 200

REACTIONS (2)
  - Pulmonary hypertension [Unknown]
  - Foot deformity [Unknown]
